FAERS Safety Report 7674143-3 (Version None)
Quarter: 2011Q3

REPORT INFORMATION
  Report Type: 
  Country: None (occurrence: None)
  Receive Date: 20110810
  Receipt Date: 20110727
  Transmission Date: 20111222
  Serious: Yes (Hospitalization, Other)
  Sender: FDA-Public Use
  Company Number: US-ELI_LILLY_AND_COMPANY-US201009004080

PATIENT
  Sex: Female
  Weight: 54 kg

DRUGS (25)
  1. FORTEO [Suspect]
     Indication: OSTEOPOROSIS
     Dosage: 20 UG, DAILY (1/D)
     Route: 058
  2. FORTEO [Suspect]
     Dosage: 20 UG, QD
     Route: 065
     Dates: start: 20110608
  3. ESTRACE [Concomitant]
     Dosage: 1 MG, QD
  4. VITAMIN B-12 [Concomitant]
     Dosage: UNK UNK, MONTHLY (1/M)
  5. TRAZODONE HCL [Concomitant]
     Indication: SLEEP DISORDER
     Dosage: 150 MG, QD
  6. VITAMIN B-12 [Concomitant]
     Dosage: 500 MG, QD
     Route: 060
  7. EFFEXOR XR [Concomitant]
     Indication: DEPRESSION
     Dosage: 150 MG, QD
  8. FORTEO [Suspect]
     Dosage: 20 UG, DAILY (1/D)
  9. FORTEO [Suspect]
     Dosage: 20 UG, DAILY (1/D)
  10. FORTEO [Suspect]
     Dosage: 20 UG, QD
  11. CALCIUM CARBONATE [Concomitant]
     Indication: MINERAL SUPPLEMENTATION
     Dosage: UNK, UNKNOWN
  12. CALCIUM VIT D [Concomitant]
     Dosage: 1200 MG, QD
  13. VALIUM [Concomitant]
     Dosage: 5 MG, PRN
  14. FORTEO [Suspect]
     Dosage: 20 UG, QD
  15. FORTEO [Suspect]
     Dosage: 20 UG, QD
  16. CALCIUM CARBONATE [Concomitant]
     Dosage: 300000 MG, QD
  17. FLEXERIL [Concomitant]
     Dosage: 10 MG, TID
  18. FORTEO [Suspect]
     Dosage: 20 UG, DAILY (1/D)
  19. PRASTERONE [Concomitant]
     Indication: RENAL DISORDER
     Dosage: 5 MG, BID
  20. OXYCONTIN [Concomitant]
     Dosage: 20 MG, BID
  21. SYNTHROID [Concomitant]
  22. ANALGESICS [Concomitant]
     Indication: PAIN
  23. FORTEO [Suspect]
     Dosage: 20 UG, QD
     Route: 065
     Dates: end: 20110602
  24. CALCIUM CARBONATE [Concomitant]
     Dosage: 2000 U, UNKNOWN
  25. LIDODERM [Concomitant]
     Dosage: UNK, BID
     Route: 062

REACTIONS (27)
  - BONE DISORDER [None]
  - ABASIA [None]
  - FALL [None]
  - NEUROPATHY PERIPHERAL [None]
  - FOOT FRACTURE [None]
  - BLOOD CALCIUM DECREASED [None]
  - PARAESTHESIA [None]
  - INCREASED UPPER AIRWAY SECRETION [None]
  - EXOSTOSIS [None]
  - ANKLE FRACTURE [None]
  - JOINT INJURY [None]
  - FEELING ABNORMAL [None]
  - PAIN IN EXTREMITY [None]
  - NECK PAIN [None]
  - CONTUSION [None]
  - ASTHENIA [None]
  - SPINAL DISORDER [None]
  - VOMITING [None]
  - LUMBAR VERTEBRAL FRACTURE [None]
  - GAIT DISTURBANCE [None]
  - MUSCULAR WEAKNESS [None]
  - CALCIUM DEFICIENCY [None]
  - ORTHOSIS USER [None]
  - BACK PAIN [None]
  - LIGAMENT SPRAIN [None]
  - HYPOAESTHESIA [None]
  - MUSCLE SPASMS [None]
